FAERS Safety Report 9107128 (Version 2)
Quarter: 2013Q2

REPORT INFORMATION
  Report Type: Spontaneous
  Country: DE (occurrence: DE)
  Receive Date: 20130221
  Receipt Date: 20130429
  Transmission Date: 20140414
  Serious: Yes (Other)
  Sender: FDA-Public Use
  Company Number: DE-AMGEN-DEUSP2013011984

PATIENT
  Age: 54 Year
  Sex: Female

DRUGS (6)
  1. ENBREL [Suspect]
     Indication: PSORIATIC ARTHROPATHY
     Dosage: 50 MG, 2X/WEEK
     Dates: start: 20070801
  2. ARAVA [Concomitant]
     Dosage: 20 MG, UNK
  3. BELOC                              /00376902/ [Concomitant]
     Dosage: UNK
  4. UNIMAX [Concomitant]
     Dosage: UNK
  5. CYNT                               /00985301/ [Concomitant]
     Dosage: UNK
  6. ALLOPURINOL [Concomitant]
     Dosage: UNK

REACTIONS (2)
  - Rheumatic fever [Not Recovered/Not Resolved]
  - Drug effect decreased [Unknown]
